FAERS Safety Report 19742631 (Version 1)
Quarter: 2021Q3

REPORT INFORMATION
  Report Type: Report from Study
  Country: US (occurrence: US)
  Receive Date: 20210824
  Receipt Date: 20210824
  Transmission Date: 20211014
  Serious: Yes (Other)
  Sender: FDA-Public Use
  Company Number: US-INCYTE CORPORATION-2021IN007477

PATIENT

DRUGS (3)
  1. JAKAFI [Suspect]
     Active Substance: RUXOLITINIB
     Dosage: 20 MILLIGRAM, QD
     Route: 048
  2. OXYGEN. [Concomitant]
     Active Substance: OXYGEN
     Indication: PRODUCT USED FOR UNKNOWN INDICATION
     Route: 065
  3. JAKAFI [Suspect]
     Active Substance: RUXOLITINIB
     Indication: MYELOFIBROSIS
     Dosage: 10 MILLIGRAM, QD
     Route: 048
     Dates: start: 20210601, end: 20210817

REACTIONS (5)
  - COVID-19 [Unknown]
  - Hypoxia [Unknown]
  - Splenomegaly [Unknown]
  - Haemolytic anaemia [Unknown]
  - Product availability issue [Unknown]

NARRATIVE: CASE EVENT DATE: 20210817
